FAERS Safety Report 9369925 (Version 1)
Quarter: 2013Q2

REPORT INFORMATION
  Report Type: Spontaneous
  Country: US (occurrence: None)
  Receive Date: 20130625
  Receipt Date: 20130625
  Transmission Date: 20140414
  Serious: Yes (Hospitalization)
  Sender: FDA-Public Use
  Company Number: None

PATIENT
  Age: 56 Year
  Sex: Female
  Weight: 72.58 kg

DRUGS (1)
  1. FAMCICLOVIR [Suspect]
     Indication: VESTIBULAR NEURONITIS
     Dates: start: 20130620, end: 20130624

REACTIONS (4)
  - Heart rate increased [None]
  - Palpitations [None]
  - Heart rate abnormal [None]
  - Idiosyncratic drug reaction [None]
